FAERS Safety Report 9938755 (Version 1)
Quarter: 2014Q1

REPORT INFORMATION
  Report Type: Spontaneous
  Country: US (occurrence: US)
  Receive Date: 20140303
  Receipt Date: 20140303
  Transmission Date: 20141002
  Serious: No
  Sender: FDA-Public Use
  Company Number: US-PFIZER INC-2014055836

PATIENT
  Sex: Male

DRUGS (3)
  1. SUTENT [Suspect]
     Dosage: UNK
  2. STIVARGA [Suspect]
     Dosage: UNK
  3. GLEEVEC [Suspect]
     Dosage: UNK

REACTIONS (2)
  - Drug intolerance [Unknown]
  - Vomiting [Unknown]
